FAERS Safety Report 6300227-8 (Version None)
Quarter: 2009Q3

REPORT INFORMATION
  Report Type: 
  Country: None (occurrence: None)
  Receive Date: 20090803
  Receipt Date: 20090728
  Transmission Date: 20100115
  Serious: Yes (Other)
  Sender: FDA-Public Use
  Company Number: CHNY2009NO02985

PATIENT
  Sex: Male

DRUGS (1)
  1. HYOSCINE HBR HYT [Suspect]
     Indication: MOTION SICKNESS
     Dosage: 1 DF, ONCE/SINGLE
     Dates: start: 20090701, end: 20090701

REACTIONS (7)
  - DRY MOUTH [None]
  - GAIT DISTURBANCE [None]
  - HALLUCINATION, VISUAL [None]
  - INCORRECT DOSE ADMINISTERED [None]
  - OVERDOSE [None]
  - RESTLESSNESS [None]
  - VISUAL ACUITY REDUCED [None]
